FAERS Safety Report 12713015 (Version 2)
Quarter: 2016Q3

REPORT INFORMATION
  Report Type: Spontaneous
  Country: US (occurrence: US)
  Receive Date: 20160902
  Receipt Date: 20160926
  Transmission Date: 20161109
  Serious: Yes (Hospitalization)
  Sender: FDA-Public Use
  Company Number: US-MALLINCKRODT-T201603978

PATIENT
  Age: 11 Year
  Sex: Male

DRUGS (2)
  1. GABLOFEN [Suspect]
     Active Substance: BACLOFEN
     Indication: MUSCLE SPASTICITY
     Dosage: 750.9 ?G, QD
     Route: 037
  2. GABLOFEN [Suspect]
     Active Substance: BACLOFEN
     Indication: CEREBRAL PALSY

REACTIONS (6)
  - Erection increased [Unknown]
  - Pain [Unknown]
  - Pruritus [Unknown]
  - Muscle spasticity [Recovering/Resolving]
  - Device issue [Unknown]
  - Agitation [Unknown]

NARRATIVE: CASE EVENT DATE: 20160815
